FAERS Safety Report 18793860 (Version 1)
Quarter: 2021Q1

REPORT INFORMATION
  Report Type: Spontaneous
  Country: US (occurrence: US)
  Receive Date: 20210127
  Receipt Date: 20210127
  Transmission Date: 20210419
  Serious: Yes (Hospitalization, Other)
  Sender: FDA-Public Use
  Company Number: US-BRISTOL-MYERS SQUIBB COMPANY-BMS-2021-004393

PATIENT
  Sex: Male
  Weight: 54 kg

DRUGS (1)
  1. NULOJIX [Suspect]
     Active Substance: BELATACEPT
     Indication: RENAL TRANSPLANT
     Dosage: 275 MILLIGRAM, Q4WK
     Route: 042

REACTIONS (2)
  - Bacteraemia [Unknown]
  - Sepsis [Unknown]

NARRATIVE: CASE EVENT DATE: 20210113
